FAERS Safety Report 14333691 (Version 17)
Quarter: 2023Q2

REPORT INFORMATION
  Report Type: Spontaneous
  Country: FR (occurrence: FR)
  Receive Date: 20171228
  Receipt Date: 20230406
  Transmission Date: 20230722
  Serious: Yes (Life-Threatening, Disabling, Other)
  Sender: FDA-Public Use
  Company Number: FR-SA-2017SA215157

PATIENT
  Age: 44 Year
  Sex: Male

DRUGS (22)
  1. CARBOPLATIN [Suspect]
     Active Substance: CARBOPLATIN
     Indication: Peripheral T-cell lymphoma unspecified stage IV
     Dosage: UNK UNK, CYCLE (2 CYCLES OF DHAC)
     Route: 065
  2. PREDNISONE [Suspect]
     Active Substance: PREDNISONE
     Indication: Product used for unknown indication
     Dosage: UNK, CYCLE,(4 CYCLES OF CHOEP)
     Route: 065
  3. PREDNISONE [Suspect]
     Active Substance: PREDNISONE
     Dosage: UNK UNK, CYCLE, (1 CYCLE OF CEP)
     Route: 065
  4. CYTARABINE [Suspect]
     Active Substance: CYTARABINE
     Indication: Peripheral T-cell lymphoma unspecified stage IV
     Dosage: UNK, CYCLE, (2 CYCLES OF DHAC)
     Route: 065
  5. DEXAMETHASONE [Suspect]
     Active Substance: DEXAMETHASONE
     Indication: Peripheral T-cell lymphoma unspecified stage IV
     Dosage: UNK UNK, CYCLE (2 CYCLES OF DHAC)
     Route: 065
  6. DEXAMETHASONE [Suspect]
     Active Substance: DEXAMETHASONE
     Dosage: UNK, CYCLE
     Route: 065
  7. VALGANCICLOVIR HYDROCHLORIDE [Suspect]
     Active Substance: VALGANCICLOVIR HYDROCHLORIDE
     Indication: Peripheral T-cell lymphoma unspecified stage IV
     Dosage: 1800 MILLIGRAM, QD
     Route: 048
  8. VALGANCICLOVIR HYDROCHLORIDE [Suspect]
     Active Substance: VALGANCICLOVIR HYDROCHLORIDE
     Dosage: 900 MILLIGRAM, QD
     Route: 065
  9. VALGANCICLOVIR HYDROCHLORIDE [Suspect]
     Active Substance: VALGANCICLOVIR HYDROCHLORIDE
     Dosage: 1800 MILLIGRAM, QD
     Route: 065
  10. ETOPOSIDE [Suspect]
     Active Substance: ETOPOSIDE
     Indication: Product used for unknown indication
     Dosage: NK UNK, CYCLE ( 4 CYCLES OF CHOEP PLUS ETOPOSIDE)
     Route: 065
  11. ETOPOSIDE [Suspect]
     Active Substance: ETOPOSIDE
     Dosage: UNK, CYCLE, CYCLIC (1 CYCLE OF CEP)
     Route: 065
  12. BENDAMUSTINE HYDROCHLORIDE [Suspect]
     Active Substance: BENDAMUSTINE HYDROCHLORIDE
     Indication: Peripheral T-cell lymphoma unspecified stage IV
     Dosage: UNK UNK, CYCLE, (3 CYCLES)
     Route: 042
  13. DOXORUBICIN [Suspect]
     Active Substance: DOXORUBICIN
     Indication: Peripheral T-cell lymphoma unspecified stage IV
     Dosage: UNK UNK, 4 CYCLE
     Route: 065
  14. BRENTUXIMAB VEDOTIN [Suspect]
     Active Substance: BRENTUXIMAB VEDOTIN
     Indication: T-cell lymphoma stage IV
     Dosage: UNK, CYCLE
     Route: 065
  15. BRENTUXIMAB VEDOTIN [Suspect]
     Active Substance: BRENTUXIMAB VEDOTIN
     Indication: Peripheral T-cell lymphoma unspecified stage IV
     Dosage: 2 WEEKS AFTER THE 2 ND CYCLE
     Route: 065
     Dates: start: 20150416
  16. CYCLOPHOSPHAMIDE [Suspect]
     Active Substance: CYCLOPHOSPHAMIDE
     Indication: T-cell lymphoma stage IV
     Dosage: UNK UNK, CYCLE (1 CYCLE OF CEP
     Route: 065
  17. CYCLOPHOSPHAMIDE [Suspect]
     Active Substance: CYCLOPHOSPHAMIDE
     Indication: Peripheral T-cell lymphoma unspecified stage IV
     Dosage: UNK CYCLIC (4 CYCLES OF CHOEP)
     Route: 065
  18. VINCRISTINE [Suspect]
     Active Substance: VINCRISTINE
     Indication: Peripheral T-cell lymphoma unspecified stage IV
     Dosage: UNK, CYCLE,  (4 CYCLES OF CHOEP)
     Route: 065
  19. ADRIAMYCIN [Suspect]
     Active Substance: DOXORUBICIN HYDROCHLORIDE
     Indication: Peripheral T-cell lymphoma unspecified stage IV
     Dosage: UNK UNK, CYCLE (4 CYCLES OF CHOEP)
     Route: 065
  20. ADCETRIS [Suspect]
     Active Substance: BRENTUXIMAB VEDOTIN
     Indication: Peripheral T-cell lymphoma unspecified stage IV
     Dosage: UNK, CYCLEC
     Route: 042
     Dates: start: 20150416
  21. ADCETRIS [Suspect]
     Active Substance: BRENTUXIMAB VEDOTIN
     Dosage: UNK, CYCLE (1 UNK, 2 WEEKS AFTER THE 2 ND CYCLE)
     Route: 065
  22. ADCETRIS [Suspect]
     Active Substance: BRENTUXIMAB VEDOTIN
     Dosage: UNK, CYCLE (4TH CYCLE)
     Route: 042
     Dates: start: 20150416

REACTIONS (13)
  - Alanine aminotransferase increased [Unknown]
  - Gamma-glutamyltransferase increased [Unknown]
  - Septic shock [Unknown]
  - Malignant neoplasm progression [Unknown]
  - T-cell lymphoma stage IV [Unknown]
  - Drug ineffective [Unknown]
  - Pyrexia [Unknown]
  - Dyspnoea [Unknown]
  - Hepatitis viral [Unknown]
  - Blindness [Unknown]
  - Cytomegalovirus chorioretinitis [Not Recovered/Not Resolved]
  - Pneumonia [Unknown]
  - Cytomegalovirus infection reactivation [Unknown]

NARRATIVE: CASE EVENT DATE: 20150707
